FAERS Safety Report 21279997 (Version 1)
Quarter: 2022Q3

REPORT INFORMATION
  Report Type: Spontaneous
  Country: US (occurrence: None)
  Receive Date: 20220831
  Receipt Date: 20220831
  Transmission Date: 20221027
  Serious: Yes (Other)
  Sender: FDA-Public Use
  Company Number: None

PATIENT
  Age: 44 Year
  Sex: Male
  Weight: 81.45 kg

DRUGS (1)
  1. VALACYCLOVIR HYDROCHLORIDE [Suspect]
     Active Substance: VALACYCLOVIR HYDROCHLORIDE
     Indication: Herpes zoster
     Dosage: FREQUENCY : EVERY 8 HOURS;?
     Route: 048
     Dates: start: 20220329, end: 20220405

REACTIONS (10)
  - Panic attack [None]
  - Euphoric mood [None]
  - Hallucination, visual [None]
  - Insomnia [None]
  - Delusion [None]
  - Agitation [None]
  - Hallucination, auditory [None]
  - Paranoia [None]
  - Confusional state [None]
  - Imprisonment [None]

NARRATIVE: CASE EVENT DATE: 20220404
